FAERS Safety Report 4516670-3 (Version None)
Quarter: 2004Q4

REPORT INFORMATION
  Report Type: 
  Country: None (occurrence: None)
  Receive Date: 20041130
  Receipt Date: 20041112
  Transmission Date: 20050328
  Serious: Yes (Other)
  Sender: FDA-Public Use
  Company Number: JP_041105032

PATIENT
  Age: 50 Year
  Sex: Female

DRUGS (5)
  1. ZYPREXA [Suspect]
     Indication: SCHIZOPHRENIA
     Dosage: 15 MG DAY
     Dates: start: 20040524, end: 20041028
  2. CONSTAN (ALPRAZOLAM DUM) [Concomitant]
  3. LEXOTAN (BROMAZEPAM) [Concomitant]
  4. ROHYPNOL (FLUNITRAZEPAM EG) [Concomitant]
  5. PURSENNID [Concomitant]

REACTIONS (8)
  - HYPERLIPIDAEMIA [None]
  - MALAISE [None]
  - MUSCULOSKELETAL STIFFNESS [None]
  - PALPITATIONS [None]
  - PARAESTHESIA [None]
  - POLYCYTHAEMIA [None]
  - SOMNOLENCE [None]
  - WEIGHT INCREASED [None]
